FAERS Safety Report 15396017 (Version 1)
Quarter: 2018Q3

REPORT INFORMATION
  Report Type: Spontaneous
  Country: IT (occurrence: IT)
  Receive Date: 20180918
  Receipt Date: 20180918
  Transmission Date: 20181010
  Serious: Yes (Hospitalization)
  Sender: FDA-Public Use
  Company Number: PHHY2018IT100739

PATIENT
  Age: 68 Year
  Sex: Female

DRUGS (8)
  1. COUMADIN [Suspect]
     Active Substance: WARFARIN SODIUM
     Indication: MITRAL VALVE REPLACEMENT
     Dosage: 5 MG, UNK
     Route: 048
     Dates: start: 20100101, end: 20170305
  2. TRIATEC [Concomitant]
     Indication: HYPERTENSION
     Dosage: 10 MG, UNK
     Route: 048
     Dates: start: 20100101, end: 20170312
  3. ALDACTONE [Concomitant]
     Active Substance: SPIRONOLACTONE
     Indication: HYPERTENSION
     Dosage: 25 MG, UNK
     Route: 048
     Dates: start: 20100101, end: 20170312
  4. LASIX [Concomitant]
     Active Substance: FUROSEMIDE
     Indication: PRODUCT USED FOR UNKNOWN INDICATION
     Dosage: 25 MG, UNK
     Route: 048
     Dates: start: 20100101, end: 20170312
  5. AMOXICILLIN. [Suspect]
     Active Substance: AMOXICILLIN
     Indication: MITRAL VALVE REPLACEMENT
     Dosage: 2 G, UNK
     Route: 048
     Dates: start: 20170305, end: 20170312
  6. CORDARONE [Concomitant]
     Active Substance: AMIODARONE HYDROCHLORIDE
     Indication: ATRIAL FIBRILLATION
     Dosage: 200 MG, UNK
     Route: 048
     Dates: start: 20100101, end: 20170312
  7. PROVISACOR [Concomitant]
     Active Substance: ROSUVASTATIN
     Indication: HYPERTENSION
     Dosage: 10 MG, UNK
     Route: 048
     Dates: start: 20100101, end: 20170312
  8. FLUXUM [Suspect]
     Active Substance: PARNAPARIN SODIUM
     Indication: MITRAL VALVE REPLACEMENT
     Dosage: 4.250 U.I,
     Route: 058
     Dates: start: 20170305, end: 20170312

REACTIONS (1)
  - Gingival bleeding [Recovering/Resolving]

NARRATIVE: CASE EVENT DATE: 20170312
